FAERS Safety Report 6983944-6 (Version None)
Quarter: 2010Q3

REPORT INFORMATION
  Report Type: 
  Country: None (occurrence: None)
  Receive Date: 20100914
  Receipt Date: 20090428
  Transmission Date: 20110219
  Serious: No
  Sender: FDA-Public Use
  Company Number: US-WYE-H09159009

PATIENT
  Age: 47 Year
  Sex: Female
  Weight: 61.29 kg

DRUGS (1)
  1. ADVIL PM [Suspect]
     Indication: ANALGESIC THERAPY
     Dosage: 1 CAPLET X 1
     Route: 048
     Dates: start: 20090427, end: 20090427

REACTIONS (1)
  - RESTLESS LEGS SYNDROME [None]
